FAERS Safety Report 10215669 (Version 1)
Quarter: 2014Q2

REPORT INFORMATION
  Report Type: Spontaneous
  Country: FR (occurrence: None)
  Receive Date: 20140602
  Receipt Date: 20140602
  Transmission Date: 20141212
  Serious: Yes (Hospitalization)
  Sender: FDA-Public Use
  Company Number: RISP20140007

PATIENT
  Age: 31 Year
  Sex: Female

DRUGS (1)
  1. RISPERIDONE TABLETS (RISPERIDONE) (TABLETS) (RISPERIDONE) [Suspect]
     Indication: PRODUCT USED FOR UNKNOWN INDICATION
     Route: 048

REACTIONS (1)
  - Acute generalised exanthematous pustulosis [None]
